FAERS Safety Report 6274302-0 (Version None)
Quarter: 2009Q3

REPORT INFORMATION
  Report Type: 
  Country: None (occurrence: None)
  Receive Date: 20090716
  Receipt Date: 20090708
  Transmission Date: 20100115
  Serious: Yes (Other)
  Sender: FDA-Public Use
  Company Number: 2009SP015096

PATIENT
  Age: 1 Day
  Sex: Female
  Weight: 2.4 kg

DRUGS (12)
  1. BETAMETHASONE SODIUM PHOSPHATE [Suspect]
     Dosage: TRPL
     Route: 064
  2. CISPLATIN [Suspect]
     Indication: DRUG USE FOR UNKNOWN INDICATION
     Dosage: TRPL
     Route: 064
  3. PACLITAXEL [Suspect]
     Indication: DRUG USE FOR UNKNOWN INDICATION
     Dosage: TRPL
     Route: 064
  4. TAVEGYL (CLEMASTINE) [Suspect]
     Indication: DRUG USE FOR UNKNOWN INDICATION
     Dosage: TRPL
     Route: 064
  5. ZOFRAN [Suspect]
     Indication: DRUG USE FOR UNKNOWN INDICATION
     Dosage: TRPL
     Route: 064
  6. ZANTAC [Suspect]
     Indication: PROPHYLAXIS
     Dosage: 50 MG; TRPL
     Route: 064
     Dates: start: 20090113, end: 20090113
  7. ZANTAC [Suspect]
     Indication: PROPHYLAXIS
     Dosage: 50 MG; TRPL
     Route: 064
     Dates: start: 20090205, end: 20090205
  8. DEXAMETHASONE TAB [Suspect]
     Indication: DRUG USE FOR UNKNOWN INDICATION
     Dosage: TRPL
     Route: 064
  9. SOLU-MEDROL [Suspect]
     Indication: DRUG USE FOR UNKNOWN INDICATION
     Dosage: TRPL
     Route: 064
  10. PRIMPERAN TAB [Suspect]
     Dosage: 10 MG; QID; TRPL
     Route: 064
  11. LASIX [Concomitant]
  12. TEMESTA [Concomitant]

REACTIONS (8)
  - BLOOD BILIRUBIN INCREASED [None]
  - HYPOGLYCAEMIA NEONATAL [None]
  - HYPOTHERMIA NEONATAL [None]
  - JAUNDICE NEONATAL [None]
  - MATERNAL DRUGS AFFECTING FOETUS [None]
  - NEONATAL RESPIRATORY DISTRESS SYNDROME [None]
  - PLATELET COUNT INCREASED [None]
  - PREMATURE BABY [None]
